FAERS Safety Report 18977856 (Version 1)
Quarter: 2021Q1

REPORT INFORMATION
  Report Type: Spontaneous
  Country: US (occurrence: US)
  Receive Date: 20210306
  Receipt Date: 20210306
  Transmission Date: 20210420
  Serious: No
  Sender: FDA-Public Use
  Company Number: US-TEVA-2021-US-1884118

PATIENT
  Sex: Female

DRUGS (3)
  1. BOTOX [Concomitant]
     Active Substance: ONABOTULINUMTOXINA
  2. AUSTEDO [Suspect]
     Active Substance: DEUTETRABENAZINE
     Dosage: 48 MILLIGRAM DAILY; IS CURRENTLY TAKING TWO 12 MG TABLETS TWICE DAILY DOSE
     Route: 048
  3. AUSTEDO [Suspect]
     Active Substance: DEUTETRABENAZINE
     Indication: TARDIVE DYSKINESIA
     Route: 048
     Dates: start: 20200420

REACTIONS (3)
  - Drug ineffective [Unknown]
  - Dyskinesia [Unknown]
  - Trismus [Unknown]
